FAERS Safety Report 9811866 (Version 3)
Quarter: 2015Q4

REPORT INFORMATION
  Report Type: Spontaneous
  Country: US (occurrence: US)
  Receive Date: 20140110
  Receipt Date: 20151228
  Transmission Date: 20160305
  Serious: Yes (Other)
  Sender: FDA-Public Use
  Company Number: US-SANOFI-AVENTIS-2013SA068479

PATIENT
  Age: 73 Year
  Sex: Male

DRUGS (37)
  1. PLAVIX [Suspect]
     Active Substance: CLOPIDOGREL BISULFATE
     Indication: ARTERIOSCLEROSIS
     Route: 048
     Dates: start: 20090921, end: 20100922
  2. VIAGRA [Concomitant]
     Active Substance: SILDENAFIL CITRATE
  3. SIMVASTATIN. [Concomitant]
     Active Substance: SIMVASTATIN
     Indication: BLOOD CHOLESTEROL
     Dosage: VIA MOUTH
     Route: 048
  4. EPOGEN [Concomitant]
     Active Substance: ERYTHROPOIETIN
  5. COLCRYS [Concomitant]
     Active Substance: COLCHICINE
     Indication: GOUT
     Route: 048
     Dates: end: 20140811
  6. CYANOCOBALAMIN. [Concomitant]
     Active Substance: CYANOCOBALAMIN
     Route: 030
  7. MELATONIN [Concomitant]
     Active Substance: MELATONIN
  8. PLAVIX [Suspect]
     Active Substance: CLOPIDOGREL BISULFATE
     Indication: ARTERIOSCLEROSIS
     Route: 048
     Dates: start: 20111121, end: 20120105
  9. RANITIDINE [Concomitant]
     Active Substance: RANITIDINE\RANITIDINE HYDROCHLORIDE
     Dosage: STRENGTH: 150 MG
     Route: 048
  10. CALCITROL [Concomitant]
     Active Substance: CALCITRIOL
     Dosage: STRENGTH: 0.25 MCG
     Route: 048
     Dates: end: 20140506
  11. NITROQUICK [Concomitant]
     Active Substance: NITROGLYCERIN
  12. INDOMETHACIN. [Concomitant]
     Active Substance: INDOMETHACIN
  13. POTASSIUM [Concomitant]
     Active Substance: POTASSIUM
  14. ZOSYN [Concomitant]
     Active Substance: PIPERACILLIN SODIUM\TAZOBACTAM SODIUM
  15. SIMVASTATIN. [Concomitant]
     Active Substance: SIMVASTATIN
     Indication: BLOOD CHOLESTEROL
     Route: 048
     Dates: end: 20150108
  16. ALLOPURINOL. [Concomitant]
     Active Substance: ALLOPURINOL
     Dosage: STRENGTH: 100 MG
     Route: 048
  17. FISH OIL [Concomitant]
     Active Substance: FISH OIL
     Route: 048
  18. NITROGLYCERINE [Concomitant]
     Active Substance: NITROGLYCERIN
     Dosage: FREQUENCY: EVERY 5 MINUTE AS NEEDED AND ROUTE: SUBLINGUAL
     Route: 060
     Dates: end: 20150108
  19. CIPRO [Concomitant]
     Active Substance: CIPROFLOXACIN HYDROCHLORIDE
  20. LASIX [Concomitant]
     Active Substance: FUROSEMIDE
  21. MECLOZINE [Concomitant]
     Active Substance: MECLIZINE\MECLIZINE HYDROCHLORIDE
     Indication: DIZZINESS
  22. DONEPEZIL. [Concomitant]
     Active Substance: DONEPEZIL
     Dosage: ROUTE: VIA MOUTH
     Route: 048
  23. CALCIUM [Concomitant]
     Active Substance: CALCIUM
  24. ASPIRIN. [Concomitant]
     Active Substance: ASPIRIN
     Route: 048
  25. DIPHENHYDRAMINE. [Concomitant]
     Active Substance: DIPHENHYDRAMINE
     Dosage: STRENGTH: 25 MG?FREQUENCY: AT BEDTIME AS NEEDED
     Route: 048
  26. BIOTIN [Concomitant]
     Active Substance: BIOTIN
     Route: 048
  27. FERROUS SULFATE [Concomitant]
     Active Substance: FERROUS SULFATE\FERROUS SULFATE, DRIED
     Route: 048
     Dates: end: 20120710
  28. OXYCODONE [Concomitant]
     Active Substance: OXYCODONE
     Indication: PAIN
     Dosage: DOSE-5-325
  29. SERTRALINE [Concomitant]
     Active Substance: SERTRALINE HYDROCHLORIDE
  30. VITAMIN B1 [Concomitant]
     Active Substance: THIAMINE HYDROCHLORIDE
  31. PLAVIX [Suspect]
     Active Substance: CLOPIDOGREL BISULFATE
     Indication: ARTERIOSCLEROSIS
     Route: 065
     Dates: start: 20050824, end: 20060825
  32. LOSARTAN. [Concomitant]
     Active Substance: LOSARTAN
     Indication: CARDIAC DISORDER
     Route: 048
     Dates: end: 20150108
  33. ISOSORBIDE MONONITRATE. [Concomitant]
     Active Substance: ISOSORBIDE MONONITRATE
     Indication: CARDIAC DISORDER
     Route: 048
  34. GEMFIBROZIL. [Concomitant]
     Active Substance: GEMFIBROZIL
     Dosage: VIA MOUTH
     Route: 048
     Dates: end: 20150108
  35. NITROSTAT [Concomitant]
     Active Substance: NITROGLYCERIN
     Dosage: THE TONGUE Q5MIN AS NEEDED
     Route: 058
  36. PLAVIX [Suspect]
     Active Substance: CLOPIDOGREL BISULFATE
     Indication: ARTERIOSCLEROSIS
     Route: 065
     Dates: start: 20050801
  37. PLAVIX [Suspect]
     Active Substance: CLOPIDOGREL BISULFATE
     Indication: ARTERIOSCLEROSIS
     Route: 048
     Dates: start: 20101108, end: 20111109

REACTIONS (1)
  - Gastrointestinal haemorrhage [Unknown]

NARRATIVE: CASE EVENT DATE: 201110
